FAERS Safety Report 9526646 (Version 1)
Quarter: 2013Q3

REPORT INFORMATION
  Report Type: Spontaneous
  Country: IT (occurrence: IT)
  Receive Date: 20130916
  Receipt Date: 20130916
  Transmission Date: 20140515
  Serious: Yes (Other)
  Sender: FDA-Public Use
  Company Number: IT-TEVA-431130ISR

PATIENT
  Age: 59 Year
  Sex: Male

DRUGS (3)
  1. OXALIPLATINO [Suspect]
     Indication: COLON NEOPLASM
     Route: 042
     Dates: start: 20130826, end: 20130826
  2. LEDERFOLIN [Concomitant]
     Dates: start: 20130826, end: 20130827
  3. FLUOROURACILE [Concomitant]
     Dates: start: 20130826, end: 20130827

REACTIONS (1)
  - Hyperpyrexia [Recovered/Resolved]
